FAERS Safety Report 10053035 (Version 2)
Quarter: 2014Q2

REPORT INFORMATION
  Report Type: Spontaneous
  Country: BR (occurrence: BR)
  Receive Date: 20140402
  Receipt Date: 20140408
  Transmission Date: 20141212
  Serious: Yes (Hospitalization)
  Sender: FDA-Public Use
  Company Number: BR-PFIZER INC-2014089846

PATIENT
  Age: 64 Year
  Sex: Female
  Weight: 68 kg

DRUGS (2)
  1. CELEBRA [Suspect]
     Indication: PAIN
     Dosage: 200 MG (1 CAPSULE), 2X/DAY (EVERY 12 HOURS)
     Route: 048
     Dates: start: 2009
  2. CELEBRA [Suspect]
     Dosage: NOT A CONTINUOUS USE, SOMETIMES THERE WERE INTERVALS
     Route: 048
     Dates: start: 2009

REACTIONS (2)
  - Intervertebral disc protrusion [Unknown]
  - Urinary tract infection [Unknown]
